FAERS Safety Report 9684777 (Version 1)
Quarter: 2013Q4

REPORT INFORMATION
  Report Type: Spontaneous
  Country: US (occurrence: US)
  Receive Date: 20131112
  Receipt Date: 20131112
  Transmission Date: 20140711
  Serious: Yes (Death, Hospitalization, Other)
  Sender: FDA-Public Use
  Company Number: US-BAXTER-2013BAX043658

PATIENT
  Sex: Male

DRUGS (1)
  1. DIANEAL LOW CALCIUM [Suspect]
     Indication: PERITONEAL DIALYSIS
     Route: 033
     Dates: end: 20131023

REACTIONS (5)
  - Peritonitis bacterial [Fatal]
  - Hepatic atrophy [Fatal]
  - Disease progression [Unknown]
  - Intestinal obstruction [Unknown]
  - Confusional state [Unknown]
